FAERS Safety Report 8911977 (Version 1)
Quarter: 2012Q4

REPORT INFORMATION
  Report Type: 
  Country: US (occurrence: US)
  Receive Date: 20121116
  Receipt Date: 20121116
  Transmission Date: 20130627
  Serious: No
  Sender: FDA-Public Use
  Company Number: US-B.I. PHARMACEUTICALS,INC./RIDGEFIELD-2012-BP-27482BP

PATIENT
  Sex: Male

DRUGS (1)
  1. MICARDIS [Suspect]
     Indication: HYPERTENSION
     Dosage: 20 mg
     Route: 048

REACTIONS (2)
  - Arthritis [Not Recovered/Not Resolved]
  - Product quality issue [Unknown]
